FAERS Safety Report 24039987 (Version 2)
Quarter: 2024Q3

REPORT INFORMATION
  Report Type: Spontaneous
  Country: IT (occurrence: IT)
  Receive Date: 20240702
  Receipt Date: 20240715
  Transmission Date: 20241017
  Serious: Yes (Life-Threatening, Hospitalization, Other)
  Sender: ACCORD
  Company Number: IT-EMA-DD-20240621-7482659-111615

PATIENT
  Age: 64 Year
  Sex: Male

DRUGS (3)
  1. AZACITIDINE [Suspect]
     Active Substance: AZACITIDINE
     Indication: Myelodysplastic syndrome
     Dosage: CYCLICAL AZACITIDINE
     Dates: start: 202008
  2. ETANERCEPT [Suspect]
     Active Substance: ETANERCEPT
     Indication: Psoriatic arthropathy
     Dosage: HE RECEIVED ETANERCEPT FOR PSORIATIC ARTHRITIS BETWEEN JAN-2018 AND NOV-2019
     Dates: start: 201801, end: 201911
  3. ETANERCEPT [Suspect]
     Active Substance: ETANERCEPT
     Indication: Psoriatic arthropathy
     Dosage: HE RECEIVED ETANERCEPT FOR PSORIATIC ARTHRITIS BETWEEN JAN-2018 AND NOV-2019
     Dates: start: 202008

REACTIONS (5)
  - Haemophagocytic lymphohistiocytosis [Recovered/Resolved]
  - Gastritis haemorrhagic [Recovered/Resolved]
  - Ulcerative gastritis [Recovered/Resolved]
  - Ulcerative duodenitis [Recovered/Resolved]
  - Oesophageal ulcer haemorrhage [Unknown]

NARRATIVE: CASE EVENT DATE: 20191101
